FAERS Safety Report 9461435 (Version 1)
Quarter: 2013Q3

REPORT INFORMATION
  Report Type: Spontaneous
  Country: US (occurrence: US)
  Receive Date: 20130816
  Receipt Date: 20130816
  Transmission Date: 20140515
  Serious: Yes (Hospitalization, Other)
  Sender: FDA-Public Use
  Company Number: PHEH2013US016987

PATIENT
  Age: 66 Year
  Sex: Male

DRUGS (13)
  1. NEORAL [Suspect]
     Indication: LIVER TRANSPLANT
     Dosage: 150 MG, BID
  2. OXCARBAZEPINE [Suspect]
  3. METOPROLOL [Suspect]
     Indication: BLOOD PRESSURE
     Dosage: 25 MG, TID
  4. METOPROLOL [Suspect]
     Dosage: 25 MG, BID
  5. LYRICA [Suspect]
     Indication: NEUROPATHY PERIPHERAL
     Dosage: 100 MG, BID
     Dates: start: 2010
  6. LYRICA [Suspect]
     Dosage: 100 MG, TID
  7. LYRICA [Suspect]
     Dosage: 50 MG, QD
  8. PROCARDIA XL [Suspect]
     Dosage: 60 MG, BID
  9. PROCARDIA XL [Suspect]
     Dosage: 60 MG, QD
  10. CELLCEPT [Suspect]
     Dosage: 250 MG, BID
  11. COUMADINE [Suspect]
     Dosage: 2.5 MG, QD
  12. CELEXA [Suspect]
     Dosage: 20 MG, QD
  13. RENVELA [Suspect]
     Dosage: 800 MG, UNK

REACTIONS (4)
  - Renal failure [Unknown]
  - Fall [Unknown]
  - Hypersomnia [Unknown]
  - Pain in extremity [Unknown]
